FAERS Safety Report 25545342 (Version 1)
Quarter: 2025Q3

REPORT INFORMATION
  Report Type: Spontaneous
  Country: US (occurrence: US)
  Receive Date: 20250711
  Receipt Date: 20250711
  Transmission Date: 20251021
  Serious: Yes (Other)
  Sender: VISTAPHARM
  Company Number: US-VISTAPHARM-2025-US-033181

PATIENT
  Age: 27 Year
  Sex: Female

DRUGS (1)
  1. MYCOPHENOLATE MOFETIL [Suspect]
     Active Substance: MYCOPHENOLATE MOFETIL
     Indication: Choroiditis

REACTIONS (1)
  - Rebound effect [Unknown]
